FAERS Safety Report 5689111-0 (Version None)
Quarter: 2008Q1

REPORT INFORMATION
  Report Type: 
  Country: None (occurrence: None)
  Receive Date: 20080331
  Receipt Date: 20080317
  Transmission Date: 20080703
  Serious: Yes (Other)
  Sender: FDA-Public Use
  Company Number: DE-AMGEN-UK246021

PATIENT
  Age: 22 Year
  Sex: Female
  Weight: 67 kg

DRUGS (3)
  1. GRANULOKINE [Suspect]
     Indication: NEUTROPENIA
     Route: 058
     Dates: start: 20001023
  2. VITAMINS WITH MINERALS [Concomitant]
     Route: 048
     Dates: start: 20061206, end: 20070822
  3. FISH OIL [Concomitant]
     Dates: start: 20070406, end: 20070602

REACTIONS (2)
  - NEPHROLITHIASIS [None]
  - RENAL DISORDER IN PREGNANCY [None]
